FAERS Safety Report 7681219-3 (Version None)
Quarter: 2011Q3

REPORT INFORMATION
  Report Type: 
  Country: None (occurrence: None)
  Receive Date: 20110812
  Receipt Date: 20060604
  Transmission Date: 20111222
  Serious: Yes (Other)
  Sender: FDA-Public Use
  Company Number: IT-BAXTER-2011BH025619

PATIENT
  Age: 42 Year
  Sex: Male

DRUGS (2)
  1. EXTRANEAL [Suspect]
     Indication: RENAL FAILURE CHRONIC
     Route: 033
     Dates: start: 20010301
  2. EXTRANEAL [Suspect]
     Route: 033
     Dates: start: 20010812

REACTIONS (2)
  - MACROPHAGES INCREASED [None]
  - INFECTIOUS PERITONITIS [None]
